FAERS Safety Report 17808723 (Version 3)
Quarter: 2020Q2

REPORT INFORMATION
  Report Type: Spontaneous
  Country: US (occurrence: US)
  Receive Date: 20200520
  Receipt Date: 20200527
  Transmission Date: 20200714
  Serious: Yes (Other)
  Sender: FDA-Public Use
  Company Number: US-SA-2020SA127142

PATIENT
  Sex: Female

DRUGS (1)
  1. LANTUS SOLOSTAR [Suspect]
     Active Substance: INSULIN GLARGINE
     Indication: TYPE 1 DIABETES MELLITUS
     Dosage: 28 TO 30 UNITS NIGHTLY
     Route: 065
     Dates: start: 2009

REACTIONS (3)
  - Device operational issue [Unknown]
  - Blood glucose increased [Unknown]
  - Diabetes mellitus inadequate control [Unknown]
